FAERS Safety Report 11320122 (Version 2)
Quarter: 2015Q3

REPORT INFORMATION
  Report Type: Spontaneous
  Country: US (occurrence: US)
  Receive Date: 20150729
  Receipt Date: 20150729
  Transmission Date: 20151125
  Serious: Yes (Other)
  Sender: FDA-Public Use
  Company Number: US-SA-2015SA107768

PATIENT
  Sex: Female
  Weight: 86 kg

DRUGS (8)
  1. TYLENOL [Concomitant]
     Active Substance: ACETAMINOPHEN
     Indication: ARTHRITIS
  2. IBUPROFEN. [Concomitant]
     Active Substance: IBUPROFEN
  3. THYROXIN [Concomitant]
     Active Substance: LEVOTHYROXINE
     Indication: THYROID DISORDER
  4. NEXIUM [Suspect]
     Active Substance: ESOMEPRAZOLE MAGNESIUM
     Indication: GASTROOESOPHAGEAL REFLUX DISEASE
     Dosage: DOSE: 225MG OR 22.5
     Route: 065
     Dates: start: 20150701
  5. VITAMIN D [Concomitant]
     Active Substance: CHOLECALCIFEROL
     Indication: EYE DISORDER
  6. GAVISCON [Suspect]
     Active Substance: ALUMINUM HYDROXIDE\MAGNESIUM CARBONATE
     Route: 065
  7. LANSOPRAZOLE. [Suspect]
     Active Substance: LANSOPRAZOLE
     Route: 065
  8. ALTACE [Concomitant]
     Active Substance: RAMIPRIL
     Indication: HYPERTENSION

REACTIONS (6)
  - Oesophageal ulcer [Unknown]
  - Choking [Unknown]
  - Myalgia [Not Recovered/Not Resolved]
  - Frustration [Unknown]
  - Muscle spasms [Not Recovered/Not Resolved]
  - Dysphagia [Recovering/Resolving]
